FAERS Safety Report 23700731 (Version 1)
Quarter: 2024Q2

REPORT INFORMATION
  Report Type: Spontaneous
  Country: US (occurrence: US)
  Receive Date: 20240403
  Receipt Date: 20240403
  Transmission Date: 20240715
  Serious: No
  Sender: FDA-Public Use
  Company Number: US-APOTEX-2024AP003842

PATIENT
  Sex: Female

DRUGS (2)
  1. TRAVOPROST [Suspect]
     Active Substance: TRAVOPROST
     Indication: Glaucoma
     Dosage: 2 DOSAGE FORM, Q.H.S. (1 DROP IN EACH EYE AT NIGHT)
     Route: 047
     Dates: start: 20240301, end: 20240302
  2. TRAVOPROST [Suspect]
     Active Substance: TRAVOPROST
     Indication: Ocular hypertension

REACTIONS (3)
  - Product container seal issue [Unknown]
  - Product packaging issue [Unknown]
  - Ocular hyperaemia [Recovered/Resolved]

NARRATIVE: CASE EVENT DATE: 20240301
